FAERS Safety Report 9823229 (Version 1)
Quarter: 2014Q1

REPORT INFORMATION
  Report Type: Spontaneous
  Country: US (occurrence: US)
  Receive Date: 20140116
  Receipt Date: 20140116
  Transmission Date: 20141002
  Serious: Yes (Other)
  Sender: FDA-Public Use
  Company Number: US-NAPPMUNDI-USA-2013-0104385

PATIENT
  Sex: Female

DRUGS (10)
  1. DILAUDID INJECTION [Suspect]
     Indication: HEADACHE
     Dosage: UNK, SEE TEXT
     Dates: start: 2006
  2. OXYCODONE HYDROCHLORIDE (SIMILAR TO NDA 22-272) [Suspect]
     Indication: PAIN
     Dosage: UNK UNK, SEE TEXT
     Route: 048
     Dates: start: 201212, end: 20130307
  3. MORPHINE SULFATE (SIMILAR TO NDA 19-516) [Suspect]
     Indication: PRODUCT USED FOR UNKNOWN INDICATION
     Dosage: UNK, SEE TEXT
     Route: 065
  4. CELEXA                             /00582602/ [Concomitant]
     Dosage: 30 MG, UNK
  5. WELLBUTRIN [Concomitant]
     Dosage: 150 MG, UNK
  6. DIAZEPAM [Concomitant]
     Dosage: 10 MG, UNK
  7. ASPIRIN [Concomitant]
  8. TYLENOL                            /00020001/ [Concomitant]
  9. ADVIL                              /00109201/ [Concomitant]
  10. FIORICET [Concomitant]
     Indication: HEADACHE

REACTIONS (2)
  - Drug abuse [Unknown]
  - Impaired driving ability [Unknown]
